FAERS Safety Report 9726174 (Version 1)
Quarter: 2013Q4

REPORT INFORMATION
  Report Type: Spontaneous
  Country: US (occurrence: None)
  Receive Date: 20131202
  Receipt Date: 20131202
  Transmission Date: 20140711
  Serious: Yes (Life-Threatening, Hospitalization)
  Sender: FDA-Public Use
  Company Number: None

PATIENT
  Age: 64 None
  Sex: Female
  Weight: 81.3 kg

DRUGS (13)
  1. INVOKANA [Suspect]
     Indication: TYPE 2 DIABETES MELLITUS
     Route: 048
  2. ALLOPURINOL [Concomitant]
  3. ASPIRIN [Concomitant]
  4. CETIRIZINE [Concomitant]
  5. GLIMEPIRIDE [Concomitant]
  6. LEVOTHYROXINE [Concomitant]
  7. LISINOPRIL [Concomitant]
  8. CENTRUM COMPLETE [Concomitant]
  9. OMEPRAZOLE [Concomitant]
  10. SIMVASTATIN [Concomitant]
  11. TRIAMTERENE HCTZ [Concomitant]
  12. IBUPROFEN [Concomitant]
  13. ACETAMINOPHEN [Concomitant]

REACTIONS (4)
  - Hyperkalaemia [None]
  - Nausea [None]
  - Dizziness [None]
  - Malaise [None]
